FAERS Safety Report 8619946-3 (Version None)
Quarter: 2012Q3

REPORT INFORMATION
  Report Type: 
  Country: None (occurrence: None)
  Receive Date: 20120817
  Receipt Date: 20120817
  Transmission Date: 20120928
  Serious: No
  Sender: FDA-Public Use
  Company Number: None

PATIENT
  Age: 20 Year
  Sex: Male
  Weight: 89.4 kg

DRUGS (1)
  1. VANCOMYCIN [Suspect]
     Indication: COLITIS ULCERATIVE
     Dosage: 1 GM IN 250 ML IVPB
     Route: 042

REACTIONS (1)
  - PRURITUS [None]
